FAERS Safety Report 7809212-8 (Version None)
Quarter: 2011Q4

REPORT INFORMATION
  Report Type: 
  Country: None (occurrence: None)
  Receive Date: 20111012
  Receipt Date: 20111010
  Transmission Date: 20120403
  Serious: No
  Sender: FDA-Public Use
  Company Number: US-B.I. PHARMACEUTICALS,INC./RIDGEFIELD-2011-BP-23929BP

PATIENT
  Sex: Female

DRUGS (9)
  1. LISINOPRIL [Concomitant]
     Indication: POLYURIA
  2. TORSEMIDE [Concomitant]
     Indication: HYPERTENSION
     Dosage: 10 MG
  3. RESTASIS [Concomitant]
     Indication: DRY EYE
  4. LISINOPRIL [Concomitant]
     Indication: FLUID RETENTION
     Dosage: 10 MG
  5. POTASSIUM CHLORIDE [Concomitant]
     Indication: SUPPLEMENTATION THERAPY
     Dosage: 20 MG
  6. PRADAXA [Suspect]
     Indication: ATRIAL FIBRILLATION
     Dosage: 300 MG
     Route: 048
     Dates: start: 20110601
  7. SYNTHROID [Concomitant]
     Indication: THYROID DISORDER
     Dosage: 75 MG
  8. PREMARIN [Concomitant]
     Indication: HORMONE LEVEL ABNORMAL
     Dosage: 0.625 MG
  9. CITALOPRAM [Concomitant]
     Indication: NERVOUSNESS
     Dosage: 10 MG

REACTIONS (1)
  - BLOOD BLISTER [None]
